FAERS Safety Report 9653287 (Version 2)
Quarter: 2014Q1

REPORT INFORMATION
  Report Type: Spontaneous
  Country: US (occurrence: None)
  Receive Date: 20131028
  Receipt Date: 20140211
  Transmission Date: 20141002
  Serious: Yes (Hospitalization)
  Sender: FDA-Public Use
  Company Number: JPI-P-034501

PATIENT
  Age: 60 Year
  Sex: Female
  Weight: 78 kg

DRUGS (23)
  1. XYREM [Suspect]
     Indication: NARCOLEPSY
     Dosage: 2.25 G, BID FOR 2 WEEKS, ORAL
     Route: 048
     Dates: start: 200905
  2. LYRICA [Suspect]
     Indication: PRODUCT USED FOR UNKNOWN INDICATION
     Dosage: 150 MG, DAILY AT LUNCH AND AT 1700
     Route: 048
  3. NEURONTIN (GABAPENTIN) [Concomitant]
  4. ARMOUR THYROID (THYROID) [Concomitant]
  5. NUVIGIL (ARMODAFINIL) [Concomitant]
  6. VICODIN (HYDROCODONE BITARTRATE, PARACETAMOL) [Concomitant]
  7. NUCYNTA (TAPENTADOL HYDROCHLORIDE) [Concomitant]
  8. CYMBALTA [Concomitant]
  9. VISTARIL (HYDROXYZINE HYDROCHLORIDE) [Concomitant]
  10. EVOXAC (CEVIMELINE HYDROCHLORIDE) [Concomitant]
  11. OMEPRAZOLE (OMEPRAZOLE) [Concomitant]
  12. DOXYCYCLINE (DOXYCYCLINE) [Concomitant]
  13. ESTRADIOL (ESTRADIOL) [Concomitant]
  14. LIPITOR (ATORVASTATIN CALCIUM) [Concomitant]
  15. ASPIRIN (ACETYLSALICYLIC ACID) [Concomitant]
  16. MAXALT (RIZATRIPTAN BENZOATE) [Concomitant]
  17. CALCIUM CARBONATE (CALCIUM CARBONATE) [Concomitant]
  18. SYNTHROID (LEVOTHYROXINE SODIUM) [Concomitant]
  19. PROVIGIL (MODAFINIL) [Concomitant]
  20. CARAFATE (SUCRALFATE) [Concomitant]
  21. FISH OIL NATURE MADE (FISH OIL) [Concomitant]
  22. MULTIVITAMINS (ASCORBIC ACID, ERGOCALCIFEROL, FOLIC ACID, NICOTINAMIDE, PANTHENOL, RETINOL, RIBOFLAVIN, THIAMINE HYDROCHLORIDE) [Concomitant]
  23. VITAMIN D (ERGOCALCIFEROL) [Concomitant]

REACTIONS (4)
  - Transient ischaemic attack [None]
  - Dizziness [None]
  - Somnolence [None]
  - Depression [None]
